FAERS Safety Report 5932008-9 (Version None)
Quarter: 2008Q4

REPORT INFORMATION
  Report Type: 
  Country: None (occurrence: None)
  Receive Date: 20081027
  Receipt Date: 20081022
  Transmission Date: 20090506
  Serious: No
  Sender: FDA-Public Use
  Company Number: US-B.I. PHARMACEUTICALS,INC./RIDGEFIELD-2008-BP-14386BP

PATIENT
  Sex: Female
  Weight: 90 kg

DRUGS (2)
  1. MICARDIS HCT [Suspect]
     Indication: HYPERTENSION
     Dates: start: 20080423, end: 20080617
  2. MICARDIS [Suspect]
     Dates: start: 20080617, end: 20080723

REACTIONS (1)
  - RASH MACULO-PAPULAR [None]
